FAERS Safety Report 18598541 (Version 1)
Quarter: 2020Q4

REPORT INFORMATION
  Report Type: Report from Study
  Country: None (occurrence: US)
  Receive Date: 20201210
  Receipt Date: 20201210
  Transmission Date: 20210114
  Serious: Yes (Other)
  Sender: FDA-Public Use
  Company Number: US-ABBVIE-20K-163-3562474-00

PATIENT
  Sex: Male
  Weight: 118.04 kg

DRUGS (2)
  1. HUMIRA [Suspect]
     Active Substance: ADALIMUMAB
     Dosage: CITRATE FREE
     Route: 058
     Dates: start: 202010
  2. HUMIRA [Suspect]
     Active Substance: ADALIMUMAB
     Indication: PSORIATIC ARTHROPATHY
     Dosage: CITRATE FREE
     Route: 058
     Dates: start: 2019, end: 202010

REACTIONS (7)
  - Quarantine [Not Recovered/Not Resolved]
  - Hemiparesis [Recovered/Resolved]
  - Cataract [Not Recovered/Not Resolved]
  - COVID-19 [Recovered/Resolved]
  - Diarrhoea [Not Recovered/Not Resolved]
  - Asymptomatic COVID-19 [Not Recovered/Not Resolved]
  - Cerebrovascular accident [Unknown]

NARRATIVE: CASE EVENT DATE: 2020
